FAERS Safety Report 6127614-5 (Version None)
Quarter: 2009Q1

REPORT INFORMATION
  Report Type: 
  Country: None (occurrence: None)
  Receive Date: 20090323
  Receipt Date: 20090310
  Transmission Date: 20090719
  Serious: Yes (Hospitalization, Disabling, Other)
  Sender: FDA-Public Use
  Company Number: US-ROCHE-465721

PATIENT
  Sex: Male
  Weight: 83.5 kg

DRUGS (2)
  1. ACCUTANE [Suspect]
     Route: 048
     Dates: start: 20000609
  2. ACCUTANE [Suspect]
     Route: 048
     Dates: start: 20000728, end: 20001205

REACTIONS (11)
  - ABDOMINAL ABSCESS [None]
  - ANAEMIA [None]
  - ANXIETY [None]
  - APHTHOUS STOMATITIS [None]
  - COLITIS [None]
  - CROHN'S DISEASE [None]
  - GASTRITIS [None]
  - GASTROINTESTINAL DISORDER [None]
  - INFLAMMATORY BOWEL DISEASE [None]
  - INTESTINAL HAEMORRHAGE [None]
  - SMALL INTESTINAL OBSTRUCTION [None]
